FAERS Safety Report 7762637-1 (Version None)
Quarter: 2011Q3

REPORT INFORMATION
  Report Type: 
  Country: None (occurrence: None)
  Receive Date: 20110920
  Receipt Date: 20110919
  Transmission Date: 20111222
  Serious: Yes (Hospitalization)
  Sender: FDA-Public Use
  Company Number: US-GLAXOSMITHKLINE-B0748457A

PATIENT
  Age: 63 Year
  Sex: Male

DRUGS (1)
  1. AVANDIA [Suspect]
     Indication: DIABETES MELLITUS
     Route: 048
     Dates: start: 20050714, end: 20100811

REACTIONS (7)
  - CARDIAC FAILURE CONGESTIVE [None]
  - CARDIAC ASSISTANCE DEVICE USER [None]
  - MYOCARDIAL INFARCTION [None]
  - CATHETERISATION CARDIAC [None]
  - APPARENT DEATH [None]
  - COMA [None]
  - CARDIAC DISORDER [None]
